FAERS Safety Report 8953137 (Version 2)
Quarter: 2013Q1

REPORT INFORMATION
  Report Type: Spontaneous
  Country: NL (occurrence: NL)
  Receive Date: 20121206
  Receipt Date: 20130114
  Transmission Date: 20140127
  Serious: Yes (Other)
  Sender: FDA-Public Use
  Company Number: NL-AMGEN-NLDSP2012077954

PATIENT
  Age: 74 Year
  Sex: Female

DRUGS (6)
  1. ENBREL [Suspect]
     Indication: RHEUMATOID ARTHRITIS
     Dosage: 50 MG, WEEKLY
     Dates: start: 2009
  2. PREDNISON [Concomitant]
     Dosage: UNK
  3. PREDNISON [Concomitant]
     Dosage: 20 MG, UNK
  4. PREDNISON [Concomitant]
     Dosage: 5 MG, UNK
  5. MELOXICAM [Concomitant]
     Dosage: UNK
  6. SERETIDE [Concomitant]
     Indication: BRONCHITIS
     Dosage: 2 DF, 2X/DAY

REACTIONS (5)
  - Pain [Not Recovered/Not Resolved]
  - Chronic obstructive pulmonary disease [Not Recovered/Not Resolved]
  - Organising pneumonia [Unknown]
  - Dyspnoea exertional [Unknown]
  - Lung disorder [Unknown]
